FAERS Safety Report 6775583-7 (Version None)
Quarter: 2010Q2

REPORT INFORMATION
  Report Type: 
  Country: None (occurrence: None)
  Receive Date: 20100617
  Receipt Date: 20100608
  Transmission Date: 20101027
  Serious: Yes (Other)
  Sender: FDA-Public Use
  Company Number: JP-B.I. PHARMACEUTICALS,INC./RIDGEFIELD-2010-BP-06470NB

PATIENT
  Age: 53 Year
  Sex: Male

DRUGS (3)
  1. BI-SIFROL TABLETS [Suspect]
     Indication: PARKINSONISM
     Dosage: 0.5 MG
     Route: 048
     Dates: start: 20100430, end: 20100512
  2. GASMOTIN [Suspect]
     Indication: ABDOMINAL DISCOMFORT
     Dosage: 15 MG
     Route: 048
     Dates: start: 20100430, end: 20100512
  3. NAUZELIN [Suspect]
     Indication: ABDOMINAL DISCOMFORT
     Dosage: 30 MG
     Route: 048
     Dates: start: 20100430, end: 20100512

REACTIONS (3)
  - ALANINE AMINOTRANSFERASE INCREASED [None]
  - ASPARTATE AMINOTRANSFERASE INCREASED [None]
  - GAMMA-GLUTAMYLTRANSFERASE INCREASED [None]
